FAERS Safety Report 7343362-8 (Version None)
Quarter: 2011Q1

REPORT INFORMATION
  Report Type: 
  Country: None (occurrence: None)
  Receive Date: 20110228
  Receipt Date: 20110222
  Transmission Date: 20110831
  Serious: Yes (Death)
  Sender: FDA-Public Use
  Company Number: 2011SP005416

PATIENT
  Age: 74 Year
  Sex: Male
  Weight: 75 kg

DRUGS (5)
  1. L-THYROX [Concomitant]
  2. TEMODAL [Suspect]
     Indication: GLIOBLASTOMA
     Dosage: 100 MG/M2; 125 MG/M2
     Dates: start: 20080213
  3. TEMODAL [Suspect]
     Indication: GLIOBLASTOMA
     Dosage: 100 MG/M2; 125 MG/M2
     Dates: end: 20080512
  4. NEXIUM [Concomitant]
  5. FORTECORTIN [Concomitant]

REACTIONS (2)
  - MULTI-ORGAN FAILURE [None]
  - PNEUMONIA ASPIRATION [None]
